FAERS Safety Report 9532924 (Version 1)
Quarter: 2013Q2

REPORT INFORMATION
  Report Type: Spontaneous
  Country: US (occurrence: None)
  Receive Date: 20130418
  Receipt Date: 20130418
  Transmission Date: 20140414
  Serious: Yes (Other)
  Sender: FDA-Public Use
  Company Number: 2013PROUSA02504

PATIENT
  Age: 88 Year
  Sex: Male
  Weight: 90.7 kg

DRUGS (2)
  1. PROVENGE (SIPULEUCEL-T) SUSPENSION, 250ML [Suspect]
     Indication: PROSTATE CANCER METASTATIC
     Route: 042
     Dates: start: 20121207, end: 20121207
  2. ANTIVERT (MECLOZINE HYDROCHLORIDE) [Concomitant]

REACTIONS (2)
  - Toothache [None]
  - Dizziness [None]
